FAERS Safety Report 8760488 (Version 1)
Quarter: 2012Q4

REPORT INFORMATION
  Report Type: 
  Country: US (occurrence: US)
  Receive Date: 20120830
  Receipt Date: 20120830
  Transmission Date: 20130627
  Serious: Yes (Hospitalization)
  Sender: FDA-Public Use
  Company Number: US-UCBSA-057247

PATIENT
  Age: 27 Year
  Sex: Female
  Weight: 71.66 kg

DRUGS (1)
  1. CIMZIA [Suspect]
     Indication: CROHN^S DISEASE
     Dates: start: 20110711, end: 20120615

REACTIONS (3)
  - Crohn^s disease [Not Recovered/Not Resolved]
  - Psychotic disorder [Unknown]
  - Abnormal behaviour [Unknown]
